FAERS Safety Report 16952352 (Version 3)
Quarter: 2019Q4

REPORT INFORMATION
  Report Type: Spontaneous
  Country: FI (occurrence: FI)
  Receive Date: 20191023
  Receipt Date: 20191126
  Transmission Date: 20200122
  Serious: No
  Sender: FDA-Public Use
  Company Number: FI-TOLMAR, INC.-19FI000619

PATIENT
  Sex: Male

DRUGS (1)
  1. ELIGARD [Suspect]
     Active Substance: LEUPROLIDE ACETATE
     Indication: PROSTATE CANCER
     Dosage: 45 MILLIGRAM; UNKNOWN
     Route: 058

REACTIONS (3)
  - Product deposit [Unknown]
  - Wrong technique in product usage process [None]
  - Intercepted product preparation error [Unknown]
